FAERS Safety Report 24743045 (Version 1)
Quarter: 2024Q4

REPORT INFORMATION
  Report Type: Spontaneous
  Country: HR (occurrence: HR)
  Receive Date: 20241217
  Receipt Date: 20241217
  Transmission Date: 20250115
  Serious: Yes (Disabling)
  Sender: BOEHRINGER INGELHEIM
  Company Number: None

PATIENT
  Age: 84 Year
  Sex: Female
  Weight: 65 kg

DRUGS (1)
  1. GILOTRIF [Suspect]
     Active Substance: AFATINIB
     Indication: Lung adenocarcinoma
     Route: 048
     Dates: start: 20240521

REACTIONS (3)
  - Wound [Recovering/Resolving]
  - Nail disorder [Recovering/Resolving]
  - Skin texture abnormal [Recovering/Resolving]

NARRATIVE: CASE EVENT DATE: 20240827
